FAERS Safety Report 22591960 (Version 1)
Quarter: 2023Q2

REPORT INFORMATION
  Report Type: Other
  Country: US (occurrence: None)
  Receive Date: 20230612
  Receipt Date: 20230612
  Transmission Date: 20230721
  Serious: No
  Sender: FDA-Public Use
  Company Number: US-ROCHE-3325505

PATIENT
  Age: 80 Year
  Sex: Male

DRUGS (3)
  1. ATEZOLIZUMAB [Suspect]
     Active Substance: ATEZOLIZUMAB
     Indication: Prostate cancer metastatic
     Route: 065
  2. CARBOPLATIN [Concomitant]
     Active Substance: CARBOPLATIN
     Indication: Prostate cancer metastatic
     Dosage: AUC 6
  3. PACLITAXEL [Concomitant]
     Active Substance: PACLITAXEL
     Indication: Prostate cancer metastatic

REACTIONS (1)
  - Disease progression [Unknown]
